FAERS Safety Report 9415344 (Version 2)
Quarter: 2013Q4

REPORT INFORMATION
  Report Type: Spontaneous
  Country: US (occurrence: US)
  Receive Date: 20130723
  Receipt Date: 20131213
  Transmission Date: 20140711
  Serious: Yes (Death, Other)
  Sender: FDA-Public Use
  Company Number: US-PFIZER INC-2013211611

PATIENT
  Age: 58 Year
  Sex: Male

DRUGS (1)
  1. RAPAMUNE [Suspect]
     Indication: LUNG DISORDER
     Dosage: 1 MG, UNK
     Dates: start: 20111122

REACTIONS (3)
  - Lung transplant rejection [Fatal]
  - Pneumonitis [Unknown]
  - Off label use [Recovered/Resolved]
